FAERS Safety Report 10676522 (Version 3)
Quarter: 2015Q4

REPORT INFORMATION
  Report Type: Report from Study
  Country: JP (occurrence: JP)
  Receive Date: 20141226
  Receipt Date: 20151102
  Transmission Date: 20160304
  Serious: Yes (Other)
  Sender: FDA-Public Use
  Company Number: PHHY2014JP165172

PATIENT
  Age: 32 Year
  Sex: Female

DRUGS (5)
  1. LOXONIN [Concomitant]
     Active Substance: LOXOPROFEN SODIUM
     Indication: PROPHYLAXIS
     Dosage: 1 DF, UNK
     Route: 048
     Dates: start: 20130912
  2. TEGRETOL [Concomitant]
     Active Substance: CARBAMAZEPINE
     Indication: EPILEPSY
     Dosage: 100 MG, TID
     Route: 048
     Dates: start: 20120424, end: 20120508
  3. EDIROL [Concomitant]
     Active Substance: ELDECALCITOL
     Indication: MULTIPLE SCLEROSIS
     Dosage: 0.75 UG, UNK
     Route: 048
     Dates: start: 20130307
  4. SOLU-MEDROL [Concomitant]
     Active Substance: METHYLPREDNISOLONE SODIUM SUCCINATE
     Indication: MULTIPLE SCLEROSIS
     Dosage: 1000 MG, UNK
     Route: 065
     Dates: start: 20120322, end: 20120323
  5. GILENYA [Suspect]
     Active Substance: FINGOLIMOD HYDROCHLORIDE
     Indication: MULTIPLE SCLEROSIS
     Dosage: 0.5 MG, QD
     Route: 048
     Dates: start: 20120327

REACTIONS (2)
  - Cervix carcinoma stage 0 [Recovered/Resolved]
  - Dysplasia [Unknown]

NARRATIVE: CASE EVENT DATE: 201401
